FAERS Safety Report 9675797 (Version 1)
Quarter: 2013Q4

REPORT INFORMATION
  Report Type: Spontaneous
  Country: DE (occurrence: DE)
  Receive Date: 20131107
  Receipt Date: 20131107
  Transmission Date: 20140711
  Serious: Yes (Other)
  Sender: FDA-Public Use
  Company Number: DE-BRISTOL-MYERS SQUIBB COMPANY-19697044

PATIENT
  Age: 62 Year
  Sex: Male

DRUGS (10)
  1. ELIQUIS [Suspect]
     Indication: ATRIAL FIBRILLATION
     Dosage: 2X DAILY IN MORNING AND EVENING?REDUCED TO 2.5MG
  2. NEBILET [Concomitant]
  3. ESOMEPRAZOLE [Concomitant]
     Dosage: POTENCY IS 40
  4. FOLSAN [Concomitant]
     Dosage: PRODUCT STRENGTH IS 5MG
  5. MILGAMMA [Concomitant]
     Dosage: PRODUCT STRENGTH IS 300
  6. TOREM [Concomitant]
  7. GLUCOPHAGE [Concomitant]
     Dosage: 1DF=850 UNITS NOT SPECIFIED
  8. HUMALOG [Concomitant]
     Dosage: 100 E/ML
  9. KREON [Concomitant]
     Dosage: KREON 25000 (PANCREATIN) 3X DAILY
  10. L-THYROXINE [Concomitant]
     Dosage: PRODUCT STRENGTH IS 25

REACTIONS (1)
  - Anaemia [Unknown]
